FAERS Safety Report 7383252-8 (Version None)
Quarter: 2011Q1

REPORT INFORMATION
  Report Type: 
  Country: None (occurrence: None)
  Receive Date: 20110330
  Receipt Date: 20110317
  Transmission Date: 20110831
  Serious: Yes (Other)
  Sender: FDA-Public Use
  Company Number: PHFR2011GB02012

PATIENT
  Sex: Male

DRUGS (3)
  1. CLOZARIL [Suspect]
     Dosage: 500MG
  2. CLOZARIL [Suspect]
     Indication: SCHIZOPHRENIA
     Dosage: 700MG
     Route: 048
     Dates: start: 19990712
  3. CLOZARIL [Suspect]
     Dosage: 600MG

REACTIONS (2)
  - HYPOGLYCAEMIA [None]
  - DRUG LEVEL ABOVE THERAPEUTIC [None]
